FAERS Safety Report 5267514-6 (Version None)
Quarter: 2007Q1

REPORT INFORMATION
  Report Type: 
  Country: None (occurrence: None)
  Receive Date: 20061213
  Receipt Date: 20031120
  Transmission Date: 20070707
  Serious: No
  Sender: FDA-Public Use
  Company Number: 2003UW15382

PATIENT
  Age: 66 Year
  Sex: Female
  Weight: 51.2565 kg

DRUGS (2)
  1. TAMOXIFEN [Suspect]
     Indication: BREAST CANCER
     Dosage: 20 MG QD PO
     Route: 048
     Dates: start: 19990101, end: 20030716
  2. IBUPROFEN [Concomitant]

REACTIONS (1)
  - UTERINE POLYP [None]
